FAERS Safety Report 13713721 (Version 2)
Quarter: 2017Q3

REPORT INFORMATION
  Report Type: Spontaneous
  Country: DE (occurrence: DE)
  Receive Date: 20170704
  Receipt Date: 20170726
  Transmission Date: 20171127
  Serious: Yes (Disabling, Other)
  Sender: FDA-Public Use
  Company Number: DE-TORRENT-00006655

PATIENT
  Age: 53 Year
  Sex: Male
  Weight: 90 kg

DRUGS (1)
  1. CITALOPRAM [Suspect]
     Active Substance: CITALOPRAM HYDROBROMIDE

REACTIONS (8)
  - Sexual dysfunction [Recovered/Resolved with Sequelae]
  - Sebaceous gland disorder [Recovered/Resolved with Sequelae]
  - Sexual dysfunction [Recovered/Resolved with Sequelae]
  - Skin disorder [Recovered/Resolved with Sequelae]
  - Erectile dysfunction [Recovered/Resolved with Sequelae]
  - Loss of libido [Recovered/Resolved with Sequelae]
  - Seborrhoea [Recovered/Resolved with Sequelae]
  - Off label use [Unknown]

NARRATIVE: CASE EVENT DATE: 20100601
